FAERS Safety Report 12251971 (Version 3)
Quarter: 2016Q2

REPORT INFORMATION
  Report Type: Spontaneous
  Country: US (occurrence: US)
  Receive Date: 20160411
  Receipt Date: 20160518
  Transmission Date: 20160815
  Serious: Yes (Hospitalization)
  Sender: FDA-Public Use
  Company Number: US-BEH-2016060978

PATIENT
  Age: 71 Year
  Sex: Female

DRUGS (1)
  1. HIZENTRA [Suspect]
     Active Substance: HUMAN IMMUNOGLOBULIN G
     Indication: PRIMARY IMMUNODEFICIENCY SYNDROME
     Dosage: START DATE: ??-JUN-2013; 12 AT FIRST, 30 ML THE PAST 2 MONTHS EVERY OTHER WEEK

REACTIONS (6)
  - Fatigue [Recovered/Resolved]
  - Sinusitis [Recovered/Resolved]
  - Kidney infection [Recovered/Resolved]
  - Asthenia [Recovered/Resolved]
  - Sinusitis [Recovered/Resolved]
  - Bronchitis [Recovered/Resolved]

NARRATIVE: CASE EVENT DATE: 201511
